FAERS Safety Report 7529097-7 (Version None)
Quarter: 2011Q2

REPORT INFORMATION
  Report Type: 
  Country: None (occurrence: None)
  Receive Date: 20110607
  Receipt Date: 20041216
  Transmission Date: 20111010
  Serious: Yes (Death)
  Sender: FDA-Public Use
  Company Number: PHFR2004GB04151

PATIENT
  Sex: Male

DRUGS (1)
  1. CLOZARIL [Suspect]
     Indication: SCHIZOPHRENIA
     Dosage: 400 MG, QD
     Route: 048
     Dates: start: 20040122

REACTIONS (5)
  - PNEUMONIA [None]
  - WHITE BLOOD CELL COUNT INCREASED [None]
  - PALLOR [None]
  - LUNG ABSCESS [None]
  - CHEST X-RAY ABNORMAL [None]
